FAERS Safety Report 9674531 (Version 1)
Quarter: 2013Q4

REPORT INFORMATION
  Report Type: Spontaneous
  Country: US (occurrence: None)
  Receive Date: 20131105
  Receipt Date: 20131105
  Transmission Date: 20140711
  Serious: No
  Sender: FDA-Public Use
  Company Number: None

PATIENT
  Age: 53 Year
  Sex: Male
  Weight: 111.13 kg

DRUGS (1)
  1. SAPHRIS [Suspect]
     Route: 060
     Dates: start: 20131018, end: 20131025

REACTIONS (2)
  - Glossodynia [None]
  - Treatment noncompliance [None]
